FAERS Safety Report 25525190 (Version 1)
Quarter: 2025Q3

REPORT INFORMATION
  Report Type: Spontaneous
  Country: US (occurrence: None)
  Receive Date: 20250705
  Receipt Date: 20250705
  Transmission Date: 20251020
  Serious: No
  Sender: FDA-CTU
  Company Number: None

PATIENT
  Age: 25 Year
  Sex: Female
  Weight: 90.9 kg

DRUGS (1)
  1. WEGOVY [Suspect]
     Active Substance: SEMAGLUTIDE
     Indication: Weight decreased

REACTIONS (2)
  - Constipation [None]
  - Haematochezia [None]

NARRATIVE: CASE EVENT DATE: 20250501
